FAERS Safety Report 19194473 (Version 1)
Quarter: 2021Q2

REPORT INFORMATION
  Report Type: Spontaneous
  Country: US (occurrence: US)
  Receive Date: 20210429
  Receipt Date: 20210429
  Transmission Date: 20210717
  Serious: Yes (Hospitalization)
  Sender: FDA-Public Use
  Company Number: US-SERVIER-S21003629

PATIENT

DRUGS (7)
  1. ONCASPAR [Suspect]
     Active Substance: PEGASPARGASE
     Indication: ACUTE LYMPHOCYTIC LEUKAEMIA
     Dosage: UNK, ONE DOSE
     Route: 042
     Dates: start: 20210218, end: 20210218
  2. TYLENOL [Concomitant]
     Active Substance: ACETAMINOPHEN
     Indication: PREMEDICATION
     Dosage: UNK
     Route: 065
     Dates: start: 20210218, end: 20210218
  3. ONCASPAR [Suspect]
     Active Substance: PEGASPARGASE
     Dosage: 1900 IU, ONE DOSE
     Route: 042
     Dates: start: 20210405, end: 20210405
  4. PEPCID [Concomitant]
     Active Substance: FAMOTIDINE
     Indication: PREMEDICATION
     Dosage: 9 MG, ONE DOSE
     Route: 048
     Dates: start: 20210405, end: 20210405
  5. BENADRYL [Concomitant]
     Active Substance: DIPHENHYDRAMINE HYDROCHLORIDE
     Indication: PREMEDICATION
     Dosage: UNK
     Route: 065
     Dates: start: 20210218, end: 20210218
  6. BENADRYL [Concomitant]
     Active Substance: DIPHENHYDRAMINE HYDROCHLORIDE
     Dosage: 19 MG, ONE DOSE
     Route: 042
     Dates: start: 20210405, end: 20210405
  7. TN UNSPECIFIED [Concomitant]
     Indication: PREMEDICATION
     Dosage: 50 MG, ONE DOSE
     Route: 042
     Dates: start: 20210405, end: 20210405

REACTIONS (2)
  - Hypersensitivity [Recovered/Resolved]
  - Hypersensitivity [Recovered/Resolved]

NARRATIVE: CASE EVENT DATE: 20210218
